FAERS Safety Report 6765076-5 (Version None)
Quarter: 2010Q2

REPORT INFORMATION
  Report Type: 
  Country: None (occurrence: None)
  Receive Date: 20100609
  Receipt Date: 20100609
  Transmission Date: 20101027
  Serious: Yes (Hospitalization)
  Sender: FDA-Public Use
  Company Number: None

PATIENT
  Age: 62 Year
  Sex: Female

DRUGS (6)
  1. LISINOPRIL [Suspect]
     Indication: HYPERTENSION
     Dosage: NOT REPORTED DAILY PO
     Route: 048
     Dates: end: 20100423
  2. FUROSEMIDE [Concomitant]
  3. PAROXETINE [Concomitant]
  4. DETROL LA [Concomitant]
  5. PREMARIN [Concomitant]
  6. LEVOTHYROXINE SODIUM [Concomitant]

REACTIONS (3)
  - ANGIOEDEMA [None]
  - MOUTH INJURY [None]
  - THROAT TIGHTNESS [None]
